FAERS Safety Report 23897669 (Version 2)
Quarter: 2024Q2

REPORT INFORMATION
  Report Type: Spontaneous
  Country: US (occurrence: US)
  Receive Date: 20240524
  Receipt Date: 20240618
  Transmission Date: 20240715
  Serious: No
  Sender: FDA-Public Use
  Company Number: US-IMP-2024000287

PATIENT
  Age: 83 Year
  Sex: Female

DRUGS (4)
  1. ILEVRO [Suspect]
     Active Substance: NEPAFENAC
     Indication: Cataract operation
     Dosage: ONE DROP DAILY RIGHT EYE
     Route: 047
     Dates: start: 202405, end: 20240515
  2. ILEVRO [Suspect]
     Active Substance: NEPAFENAC
     Indication: Cataract operation
     Dosage: ONE DROP TO RIGHT EYE FOR NEXT THREE WEEKS
     Route: 047
     Dates: end: 20240519
  3. PREDNISONE [Concomitant]
     Active Substance: PREDNISONE
     Indication: Product used for unknown indication
     Dosage: DAILY
     Route: 065
  4. MOXIFLOXACIN [Concomitant]
     Active Substance: MOXIFLOXACIN
     Indication: Product used for unknown indication
     Dosage: DAILY
     Route: 065

REACTIONS (3)
  - Product dose omission issue [Unknown]
  - Circumstance or information capable of leading to medication error [Unknown]
  - Product use issue [Unknown]

NARRATIVE: CASE EVENT DATE: 20240515
